FAERS Safety Report 10262992 (Version 2)
Quarter: 2014Q2

REPORT INFORMATION
  Report Type: Report from Study
  Country: US (occurrence: US)
  Receive Date: 20140626
  Receipt Date: 20140626
  Transmission Date: 20141212
  Serious: Yes (Death)
  Sender: FDA-Public Use
  Company Number: US-MYLANLABS-2013S1025361

PATIENT
  Age: 51 Year
  Sex: Female

DRUGS (12)
  1. CLOZAPINE TABLETS [Suspect]
     Indication: SCHIZOPHRENIA
     Route: 048
     Dates: start: 20090505, end: 201310
  2. ANTIBIOTICS [Concomitant]
  3. ALLEGRA [Concomitant]
  4. BUSPIRONE [Concomitant]
  5. CELEBREX [Concomitant]
  6. FUROSEMIDE [Concomitant]
  7. NIACIN [Concomitant]
  8. OMEPRAZOLE [Concomitant]
  9. OXYBUTIN [Concomitant]
  10. CALCIUM VITAMIN D [Concomitant]
  11. PERPHENAZINE [Concomitant]
  12. SIMVASTATIN [Concomitant]

REACTIONS (1)
  - Respiratory disorder [Fatal]
